FAERS Safety Report 20337299 (Version 3)
Quarter: 2022Q1

REPORT INFORMATION
  Report Type: Spontaneous
  Country: US (occurrence: US)
  Receive Date: 20220114
  Receipt Date: 20220330
  Transmission Date: 20220423
  Serious: Yes (Other)
  Sender: FDA-Public Use
  Company Number: US-SA-SAC20220105000304

PATIENT
  Age: 54 Year
  Sex: Female
  Weight: 81 kg

DRUGS (6)
  1. DUPIXENT [Suspect]
     Active Substance: DUPILUMAB
     Indication: Dermatitis atopic
     Dosage: 300 MG, QOW
     Route: 058
     Dates: start: 20211220
  2. DUPIXENT [Suspect]
     Active Substance: DUPILUMAB
     Indication: Eczema
  3. EUCRISA [Concomitant]
     Active Substance: CRISABOROLE
  4. CLOBETASOL PROPIONATE [Concomitant]
     Active Substance: CLOBETASOL PROPIONATE
  5. ALLEGRA-D 24 HOUR [Concomitant]
     Active Substance: FEXOFENADINE HYDROCHLORIDE\PSEUDOEPHEDRINE HYDROCHLORIDE
  6. CERAVE HEALING [Concomitant]
     Active Substance: PETROLATUM

REACTIONS (12)
  - Angioedema [Unknown]
  - Injection site pain [Recovering/Resolving]
  - Injection site urticaria [Recovering/Resolving]
  - Urticaria [Unknown]
  - Flushing [Unknown]
  - Hypersomnia [Unknown]
  - Swelling face [Unknown]
  - Malaise [Unknown]
  - Pain [Unknown]
  - Erythema [Unknown]
  - Skin burning sensation [Unknown]
  - Rash [Unknown]

NARRATIVE: CASE EVENT DATE: 20220130
